FAERS Safety Report 5937548-4 (Version None)
Quarter: 2008Q4

REPORT INFORMATION
  Report Type: 
  Country: None (occurrence: None)
  Receive Date: 20081031
  Receipt Date: 20081023
  Transmission Date: 20090506
  Serious: Yes (Other)
  Sender: FDA-Public Use
  Company Number: US-ABBOTT-08P-163-0471141-00

PATIENT
  Sex: Male
  Weight: 60.836 kg

DRUGS (13)
  1. HUMIRA [Suspect]
     Indication: RHEUMATOID ARTHRITIS
     Route: 050
     Dates: start: 20050101
  2. HUMIRA [Suspect]
     Dosage: 1 PEN
     Route: 050
     Dates: start: 20070201
  3. HUMIRA [Suspect]
     Route: 058
     Dates: start: 20050101, end: 20070101
  4. DIABETES MEDICINE [Concomitant]
     Indication: DIABETES MELLITUS
  5. PAIN PILL [Concomitant]
     Indication: DRUG USE FOR UNKNOWN INDICATION
  6. UNNAMED MEDICATION [Concomitant]
     Indication: DIABETES MELLITUS
  7. UNNAMED MEDICATION [Concomitant]
  8. UNNAMED MEDICATION [Concomitant]
     Indication: BLOOD PRESSURE
  9. UNNAMED MEDICATION [Concomitant]
  10. UNNAMED MEDICATION [Concomitant]
  11. UNNAMED MEDICATION [Concomitant]
  12. UNNAMED MEDICATION [Concomitant]
     Indication: PAIN
  13. UNNAMED MEDICATION [Concomitant]
     Indication: ARTHRITIS

REACTIONS (15)
  - BLOOD PRESSURE ABNORMAL [None]
  - BLOOD URINE PRESENT [None]
  - DIABETES MELLITUS INADEQUATE CONTROL [None]
  - DRUG INEFFECTIVE [None]
  - DYSPNOEA [None]
  - HEADACHE [None]
  - HYPERSENSITIVITY [None]
  - HYPERTENSION [None]
  - NAUSEA [None]
  - NIGHT SWEATS [None]
  - OEDEMA PERIPHERAL [None]
  - PHARYNGEAL OEDEMA [None]
  - PYREXIA [None]
  - RASH [None]
  - SCAR [None]
